FAERS Safety Report 5465857-4 (Version None)
Quarter: 2007Q3

REPORT INFORMATION
  Report Type: 
  Country: None (occurrence: None)
  Receive Date: 20070924
  Receipt Date: 20070919
  Transmission Date: 20080115
  Serious: Yes (Death, Other)
  Sender: FDA-Public Use
  Company Number: PHBS2007JP15082

PATIENT
  Age: 69 Year
  Sex: Female

DRUGS (14)
  1. PREDONINE [Concomitant]
     Dosage: 20 MG, UNK
     Route: 048
     Dates: start: 20070801
  2. PREDONINE [Concomitant]
     Dosage: 60 MG, UNK
     Route: 048
  3. DEPAKENE [Concomitant]
     Dosage: 800 MG, UNK
     Route: 048
     Dates: start: 20070810
  4. PREDNISOLONE [Concomitant]
     Dosage: 40 MG, UNK
     Dates: start: 20070803, end: 20070806
  5. TAGAMET [Concomitant]
     Dosage: 800 MG, UNK
     Route: 048
     Dates: start: 20070803, end: 20070806
  6. ALLELOCK [Concomitant]
     Dosage: 10 MG, UNK
     Route: 048
     Dates: start: 20070803, end: 20070806
  7. BIOFERMIN [Concomitant]
     Dosage: 3 G, UNK
     Dates: start: 20070807
  8. GASMOTIN [Concomitant]
     Dosage: 15 MG, UNK
     Route: 048
     Dates: start: 20070807
  9. VALPROATE SODIUM [Concomitant]
  10. SOLU-CORTEF [Concomitant]
     Dosage: 1000 MG, UNK
     Dates: start: 20070823, end: 20070825
  11. EXCEGRAN [Concomitant]
     Dosage: 200 MG, UNK
     Dates: start: 20070831
  12. TEGRETOL [Suspect]
     Indication: EPILEPSY
     Dosage: 1800 MG/DAY
     Route: 048
     Dates: start: 20070529, end: 20070725
  13. PHENYTOIN [Suspect]
     Dosage: 50 MG/DAY
     Route: 048
     Dates: end: 20070809
  14. PHENOBARBITAL TAB [Suspect]
     Dosage: 400 MG/DAY
     Route: 048

REACTIONS (26)
  - ASCITES [None]
  - BLOOD ALKALINE PHOSPHATASE INCREASED [None]
  - BLOOD GLUCOSE INCREASED [None]
  - BLOOD LACTATE DEHYDROGENASE INCREASED [None]
  - BLOOD UREA INCREASED [None]
  - C-REACTIVE PROTEIN INCREASED [None]
  - CARDIAC FAILURE [None]
  - DRUG ERUPTION [None]
  - DRUG RASH WITH EOSINOPHILIA AND SYSTEMIC SYMPTOMS [None]
  - EOSINOPHIL COUNT INCREASED [None]
  - GAMMA-GLUTAMYLTRANSFERASE INCREASED [None]
  - HAEMATOCRIT DECREASED [None]
  - HAEMOGLOBIN DECREASED [None]
  - HEPATIC ATROPHY [None]
  - HUMAN HERPES VIRUS 6 SEROLOGY POSITIVE [None]
  - LOCALISED OEDEMA [None]
  - LYMPHOCYTE COUNT DECREASED [None]
  - METHICILLIN-RESISTANT STAPHYLOCOCCAL AUREUS TEST POSITIVE [None]
  - PLATELET COUNT DECREASED [None]
  - PNEUMONIA [None]
  - PULMONARY CONGESTION [None]
  - RASH GENERALISED [None]
  - RESPIRATORY FAILURE [None]
  - SPLENIC INFARCTION [None]
  - WHITE BLOOD CELL COUNT INCREASED [None]
  - X-RAY ABNORMAL [None]
